FAERS Safety Report 11145716 (Version 1)
Quarter: 2015Q2

REPORT INFORMATION
  Report Type: Spontaneous
  Country: FR (occurrence: None)
  Receive Date: 20150526
  Receipt Date: 20150526
  Transmission Date: 20150821
  Serious: Yes (Death)
  Sender: FDA-Public Use
  Company Number: FK201502363

PATIENT
  Age: 39 Year
  Sex: Female

DRUGS (2)
  1. IFOSFAMIDE (MANUFACTURER UNKNOWN) (IFOSFAMIDE) (IFOSFAMIDE) [Suspect]
     Active Substance: IFOSFAMIDE
     Indication: UTERINE LEIOMYOSARCOMA
     Dosage: 90000 MG/M2, CYCLICAL
     Dates: start: 201205
  2. APREPITANT (APREPITANT) [Suspect]
     Active Substance: APREPITANT
     Indication: NAUSEA
     Dates: start: 201302

REACTIONS (2)
  - Encephalopathy [None]
  - Drug interaction [None]
